FAERS Safety Report 24691244 (Version 2)
Quarter: 2024Q4

REPORT INFORMATION
  Report Type: Spontaneous
  Country: CN (occurrence: CN)
  Receive Date: 20241203
  Receipt Date: 20241205
  Transmission Date: 20250115
  Serious: Yes (Life-Threatening, Other)
  Sender: PFIZER
  Company Number: CN-MLMSERVICE-20241120-PI263314-00263-1

PATIENT
  Age: 67 Year
  Sex: Male
  Weight: 70 kg

DRUGS (8)
  1. PIPERACILLIN SODIUM\TAZOBACTAM SODIUM [Suspect]
     Active Substance: PIPERACILLIN SODIUM\TAZOBACTAM SODIUM
     Indication: Pneumonia
     Dosage: 4.5 G, 3X/DAY
     Route: 042
     Dates: start: 20220702, end: 20220716
  2. PIPERACILLIN SODIUM\TAZOBACTAM SODIUM [Suspect]
     Active Substance: PIPERACILLIN SODIUM\TAZOBACTAM SODIUM
     Indication: Pleural effusion
  3. PIPERACILLIN\SULBACTAM [Suspect]
     Active Substance: PIPERACILLIN\SULBACTAM
     Indication: Pneumonia
     Dosage: 2.5 G, 3X/DAY
     Route: 042
     Dates: start: 20220607, end: 20220620
  4. VALPROATE SODIUM [Suspect]
     Active Substance: VALPROATE SODIUM
     Indication: Epilepsy
     Dosage: 0.8 G, 2X/DAY
     Route: 042
     Dates: start: 20220604, end: 20220608
  5. VALPROATE SODIUM [Suspect]
     Active Substance: VALPROATE SODIUM
     Indication: Epilepsy
     Dosage: 0.2 G, 3X/DAY
     Route: 048
     Dates: start: 20220605, end: 20220725
  6. ETIMICIN SULFATE [Concomitant]
     Active Substance: ETIMICIN SULFATE
     Indication: Pneumonia
     Dosage: 0.2 G, 1X/DAY
     Route: 042
     Dates: start: 20220705, end: 20220714
  7. ETIMICIN SULFATE [Concomitant]
     Active Substance: ETIMICIN SULFATE
     Indication: Pleural effusion
  8. PHENYTOIN SODIUM [Concomitant]
     Active Substance: PHENYTOIN SODIUM
     Indication: Epilepsy
     Dosage: 0.1 G, 3X/DAY
     Dates: start: 20220606, end: 20220725

REACTIONS (5)
  - Drug reaction with eosinophilia and systemic symptoms [Recovered/Resolved]
  - Eosinophilic pneumonia acute [Recovered/Resolved]
  - Acinetobacter infection [Recovered/Resolved]
  - Cardiac failure [Recovered/Resolved]
  - Respiratory failure [Recovered/Resolved]

NARRATIVE: CASE EVENT DATE: 20220601
